FAERS Safety Report 4626547-0 (Version None)
Quarter: 2005Q1

REPORT INFORMATION
  Report Type: 
  Country: None (occurrence: None)
  Receive Date: 20050330
  Receipt Date: 20050314
  Transmission Date: 20050727
  Serious: Yes (Death, Hospitalization)
  Sender: FDA-Public Use
  Company Number: USA040876560

PATIENT
  Age: 78 Year
  Sex: Female
  Weight: 53 kg

DRUGS (4)
  1. ALIMTA [Suspect]
     Indication: PLEURAL MESOTHELIOMA MALIGNANT
     Dosage: 830 MG OTHER
     Route: 050
     Dates: start: 20040614, end: 20040915
  2. VITAMIN B-12 [Concomitant]
  3. FOLIC ACID [Concomitant]
  4. DECADRON [Concomitant]

REACTIONS (4)
  - CARDIO-RESPIRATORY ARREST [None]
  - EXTREMITY NECROSIS [None]
  - JOINT SWELLING [None]
  - PERIPHERAL EMBOLISM [None]
